FAERS Safety Report 19484194 (Version 1)
Quarter: 2021Q3

REPORT INFORMATION
  Report Type: Spontaneous
  Country: IN (occurrence: IN)
  Receive Date: 20210701
  Receipt Date: 20210701
  Transmission Date: 20211014
  Serious: Yes (Other)
  Sender: FDA-Public Use
  Company Number: IN-FRESENIUS KABI-FK202106773

PATIENT
  Age: 55 Year
  Sex: Male

DRUGS (3)
  1. REMDESIVIR. [Concomitant]
     Active Substance: REMDESIVIR
     Indication: COVID-19
     Dosage: REMDESIVIR (200 MG ON DAY 1 AND 100 MG ON DAYS 2?5).
     Route: 065
  2. DEXAMETHASONE INJECTION (MANUFACTURER UNKNOWN) [Suspect]
     Active Substance: DEXAMETHASONE
     Indication: COVID-19
     Route: 042
  3. REMDESIVIR. [Concomitant]
     Active Substance: REMDESIVIR
     Dosage: DAYS 2?5
     Route: 065

REACTIONS (1)
  - Pulmonary mucormycosis [Recovered/Resolved]
